FAERS Safety Report 4386438-X (Version None)
Quarter: 2004Q2

REPORT INFORMATION
  Report Type: 
  Country: None (occurrence: None)
  Receive Date: 20040625
  Receipt Date: 20040625
  Transmission Date: 20050107
  Serious: Yes (Hospitalization, Disabling)
  Sender: FDA-Public Use
  Company Number: None

PATIENT
  Age: 56 Year
  Sex: Male
  Weight: 107.5025 kg

DRUGS (2)
  1. PLAVIX [Suspect]
     Dosage: ONE QD ORAL
     Route: 048
  2. PROTONIX [Suspect]
     Dosage: ONE BID ORAL
     Route: 048

REACTIONS (11)
  - CHEST PAIN [None]
  - DRY SKIN [None]
  - DYSPNOEA [None]
  - FATIGUE [None]
  - FEELING HOT [None]
  - MARKEDLY REDUCED DIETARY INTAKE [None]
  - OEDEMA PERIPHERAL [None]
  - PAIN IN EXTREMITY [None]
  - PRURITUS [None]
  - RASH [None]
  - VOMITING [None]
